FAERS Safety Report 9049496 (Version 3)
Quarter: 2013Q4

REPORT INFORMATION
  Report Type: Spontaneous
  Country: US (occurrence: US)
  Receive Date: 20130125
  Receipt Date: 20131021
  Transmission Date: 20140711
  Serious: Yes (Hospitalization, Other)
  Sender: FDA-Public Use
  Company Number: US-TARO-2013P1000946

PATIENT
  Age: 64 Year
  Sex: Male

DRUGS (2)
  1. SOLARAZE [Suspect]
     Indication: ACTINIC KERATOSIS
     Route: 061
     Dates: start: 20121019, end: 20121218
  2. NIACIN [Concomitant]
     Dates: start: 2010

REACTIONS (4)
  - Type 2 diabetes mellitus [Unknown]
  - Sepsis [Recovered/Resolved]
  - Diabetic ketoacidosis [Recovered/Resolved]
  - Renal failure acute [Recovered/Resolved]
